FAERS Safety Report 8650172 (Version 2)
Quarter: 2013Q1

REPORT INFORMATION
  Report Type: Report from Study
  Country: JP (occurrence: JP)
  Receive Date: 20120705
  Receipt Date: 20130204
  Transmission Date: 20140127
  Serious: Yes (Hospitalization)
  Sender: FDA-Public Use
  Company Number: JP-ROCHE-1082777

PATIENT
  Age: 62 Year
  Sex: Female

DRUGS (26)
  1. TOCILIZUMAB [Suspect]
     Indication: RHEUMATOID ARTHRITIS
     Route: 041
     Dates: start: 20080930, end: 20090806
  2. TOCILIZUMAB [Suspect]
     Indication: RHEUMATOID ARTHRITIS
     Route: 041
     Dates: start: 20091216, end: 20100921
  3. TOCILIZUMAB [Suspect]
     Indication: RHEUMATOID ARTHRITIS
     Route: 041
     Dates: start: 20101116, end: 20110308
  4. TOCILIZUMAB [Suspect]
     Indication: RHEUMATOID ARTHRITIS
  5. TOCILIZUMAB [Suspect]
     Indication: RHEUMATOID ARTHRITIS
  6. TOCILIZUMAB [Suspect]
     Indication: RHEUMATOID ARTHRITIS
  7. TOCILIZUMAB [Suspect]
     Indication: RHEUMATOID ARTHRITIS
  8. TOCILIZUMAB [Suspect]
     Indication: RHEUMATOID ARTHRITIS
  9. TOCILIZUMAB [Suspect]
     Indication: RHEUMATOID ARTHRITIS
  10. METHOTREXATE [Concomitant]
     Indication: RHEUMATOID ARTHRITIS
     Route: 048
  11. PREDNISOLONE [Concomitant]
     Indication: RHEUMATOID ARTHRITIS
     Route: 048
  12. PREDNISOLONE [Concomitant]
     Indication: RHEUMATOID ARTHRITIS
     Route: 048
  13. PREDONINE [Concomitant]
     Indication: RHEUMATOID ARTHRITIS
     Route: 048
  14. NORVASC [Concomitant]
     Route: 048
     Dates: end: 20100416
  15. LORFENAMIN [Concomitant]
     Indication: RHEUMATOID ARTHRITIS
     Route: 048
  16. APLACE [Concomitant]
     Indication: PROPHYLAXIS
     Route: 048
  17. BONALON [Concomitant]
     Indication: OSTEOPOROSIS
     Route: 048
  18. ISCOTIN [Concomitant]
     Indication: PROPHYLAXIS
     Route: 048
     Dates: end: 20100514
  19. KENACORT-A [Concomitant]
     Indication: RHEUMATOID ARTHRITIS
     Route: 014
     Dates: start: 20081225, end: 20081225
  20. KENACORT-A [Concomitant]
     Indication: RHEUMATOID ARTHRITIS
     Route: 014
     Dates: start: 20090122, end: 20090122
  21. KENACORT-A [Concomitant]
     Indication: RHEUMATOID ARTHRITIS
     Route: 014
     Dates: start: 20090219, end: 20090219
  22. CALBLOCK [Concomitant]
     Route: 048
     Dates: start: 20090417
  23. METHYLPREDNISOLONE ACETATE [Concomitant]
     Indication: RHEUMATOID ARTHRITIS
     Route: 014
     Dates: start: 20090416, end: 20090416
  24. METHYLPREDNISOLONE ACETATE [Concomitant]
     Indication: RHEUMATOID ARTHRITIS
     Route: 014
     Dates: start: 20090611, end: 20090611
  25. TACROLIMUS [Concomitant]
     Indication: RHEUMATOID ARTHRITIS
     Route: 048
     Dates: start: 20090709, end: 20090826
  26. TACROLIMUS [Concomitant]
     Indication: RHEUMATOID ARTHRITIS
     Route: 048
     Dates: start: 20090827

REACTIONS (2)
  - Joint swelling [Recovering/Resolving]
  - Arthralgia [Recovering/Resolving]
